FAERS Safety Report 7556213-3 (Version None)
Quarter: 2011Q2

REPORT INFORMATION
  Report Type: 
  Country: None (occurrence: None)
  Receive Date: 20110620
  Receipt Date: 20110613
  Transmission Date: 20111010
  Serious: Yes (Death)
  Sender: FDA-Public Use
  Company Number: US-CELGENEUS-163-21880-11061729

PATIENT
  Sex: Male

DRUGS (7)
  1. CRESTOR [Concomitant]
     Route: 065
  2. REVLIMID [Suspect]
     Indication: MULTIPLE MYELOMA
     Dosage: 25 MILLIGRAM
     Route: 048
     Dates: start: 20101201
  3. NEXIUM [Concomitant]
     Route: 065
  4. REVLIMID [Suspect]
     Dosage: 15 MILLIGRAM
     Route: 048
     Dates: start: 20110301
  5. DEXAMETHASONE [Concomitant]
     Route: 065
  6. XANAX [Concomitant]
     Route: 065
  7. ARANESP [Concomitant]
     Route: 065

REACTIONS (5)
  - WHITE BLOOD CELL COUNT DECREASED [None]
  - DEATH [None]
  - DYSPNOEA [None]
  - DYSPNOEA EXERTIONAL [None]
  - FATIGUE [None]
